FAERS Safety Report 12860861 (Version 1)
Quarter: 2016Q4

REPORT INFORMATION
  Report Type: Spontaneous
  Country: US (occurrence: US)
  Receive Date: 20161019
  Receipt Date: 20161019
  Transmission Date: 20170207
  Serious: Yes (Death, Other)
  Sender: FDA-Public Use
  Company Number: US-ROCHE-1840540

PATIENT
  Sex: Male
  Weight: 69.92 kg

DRUGS (3)
  1. ACTIVASE [Suspect]
     Active Substance: ALTEPLASE
     Route: 041
     Dates: start: 20161009, end: 20161009
  2. ACTIVASE [Suspect]
     Active Substance: ALTEPLASE
     Indication: CEREBROVASCULAR ACCIDENT
     Dosage: X1
     Route: 040
     Dates: start: 20161009, end: 20161009
  3. NITROGLYCERIN. [Concomitant]
     Active Substance: NITROGLYCERIN

REACTIONS (5)
  - Haemorrhage [Unknown]
  - Underdose [Unknown]
  - Cerebral haemorrhage [Fatal]
  - Blood pressure increased [Unknown]
  - Seizure [Unknown]
